FAERS Safety Report 18350313 (Version 1)
Quarter: 2020Q4

REPORT INFORMATION
  Report Type: Spontaneous
  Country: US (occurrence: US)
  Receive Date: 20201006
  Receipt Date: 20201006
  Transmission Date: 20210114
  Serious: Yes (Death, Hospitalization)
  Sender: FDA-Public Use
  Company Number: US-JNJFOC-A-NJ2019-192998

PATIENT
  Age: 73 Year
  Sex: Male
  Weight: 77.1 kg

DRUGS (18)
  1. ADEMPAS [Concomitant]
     Active Substance: RIOCIGUAT
  2. FINASTERIDE. [Concomitant]
     Active Substance: FINASTERIDE
     Dosage: UNK
     Dates: start: 20150504
  3. TIOTROPIUM [Concomitant]
     Active Substance: TIOTROPIUM
  4. UPTRAVI [Suspect]
     Active Substance: SELEXIPAG
     Dosage: 800 MCG, BID
     Route: 048
  5. PANTOPRAZOLE [Concomitant]
     Active Substance: PANTOPRAZOLE
     Dosage: UNK
     Dates: start: 20190123
  6. UPTRAVI [Suspect]
     Active Substance: SELEXIPAG
     Dosage: 600 MCG, BID
     Route: 048
  7. UPTRAVI [Suspect]
     Active Substance: SELEXIPAG
     Dosage: 1200 MCG
     Route: 048
  8. PROLASTIN [Concomitant]
     Active Substance: .ALPHA.1-PROTEINASE INHIBITOR HUMAN
     Dosage: UNK
     Dates: start: 20180620
  9. METOPROLOL. [Concomitant]
     Active Substance: METOPROLOL
  10. THEO-DUR [Concomitant]
     Active Substance: THEOPHYLLINE ANHYDROUS
     Dosage: 200 MG, BID
     Route: 048
  11. UPTRAVI [Suspect]
     Active Substance: SELEXIPAG
     Indication: PULMONARY ARTERIAL HYPERTENSION
     Dosage: 1000 MCG, BID
     Route: 048
     Dates: start: 20190515
  12. OPSUMIT [Suspect]
     Active Substance: MACITENTAN
     Indication: PULMONARY ARTERIAL HYPERTENSION
     Dosage: 10 MG, QD
     Route: 048
     Dates: start: 20180721
  13. OXYGEN. [Concomitant]
     Active Substance: OXYGEN
     Dosage: 35 L
  14. PREDNISONE. [Concomitant]
     Active Substance: PREDNISONE
     Dosage: 10 MG, QD
     Route: 048
  15. ATORVASTIN [Concomitant]
     Active Substance: ATORVASTATIN
     Dosage: UNK
     Dates: start: 20190211
  16. BREO ELLIPTA [Concomitant]
     Active Substance: FLUTICASONE FUROATE\VILANTEROL TRIFENATATE
     Dosage: UNK
  17. ASPIRIN 81 [Concomitant]
     Active Substance: ASPIRIN
     Dosage: UNK
     Dates: start: 20191030
  18. PROTONIX [OMEPRAZOLE] [Concomitant]
     Active Substance: OMEPRAZOLE
     Dosage: 40 MG, BID
     Route: 048

REACTIONS (42)
  - Pneumonia [Recovering/Resolving]
  - Terminal state [Unknown]
  - Chronic obstructive pulmonary disease [Recovering/Resolving]
  - Blood alkaline phosphatase increased [Unknown]
  - Coronary artery disease [Unknown]
  - Hypoxia [Recovering/Resolving]
  - Fatigue [Recovering/Resolving]
  - Blood glucose increased [Unknown]
  - Blood calcium decreased [Unknown]
  - Spinal osteoarthritis [Unknown]
  - Atelectasis [Unknown]
  - Pain in jaw [Unknown]
  - Pain in extremity [Unknown]
  - Productive cough [Recovering/Resolving]
  - Pulmonary arterial hypertension [Recovering/Resolving]
  - Hiatus hernia [Unknown]
  - Spinal stenosis [Unknown]
  - Dyspnoea [Recovering/Resolving]
  - Nasal congestion [Recovering/Resolving]
  - Arteriosclerosis coronary artery [Unknown]
  - Blood albumin decreased [Unknown]
  - Lymphocyte count decreased [Unknown]
  - Lymphadenopathy mediastinal [Unknown]
  - Sinus congestion [Recovering/Resolving]
  - Sepsis [Recovering/Resolving]
  - Chills [Recovering/Resolving]
  - Interstitial lung disease [Recovering/Resolving]
  - White blood cell count increased [Recovered/Resolved]
  - Chest pain [Recovering/Resolving]
  - Viral infection [Unknown]
  - Neutrophil count increased [Unknown]
  - Emphysema [Unknown]
  - Osteopenia [Unknown]
  - Urinary tract infection [Unknown]
  - Adverse event [Unknown]
  - Death [Fatal]
  - Acute respiratory failure [Recovering/Resolving]
  - Pyrexia [Recovering/Resolving]
  - Brain natriuretic peptide increased [Unknown]
  - Hepatic steatosis [Unknown]
  - Headache [Unknown]
  - Limb discomfort [Unknown]

NARRATIVE: CASE EVENT DATE: 202004
